FAERS Safety Report 8397846-4 (Version None)
Quarter: 2012Q2

REPORT INFORMATION
  Report Type: 
  Country: None (occurrence: None)
  Receive Date: 20120531
  Receipt Date: 20120523
  Transmission Date: 20120825
  Serious: Yes (Hospitalization)
  Sender: FDA-Public Use
  Company Number: PHHY2012CA046017

PATIENT
  Sex: Female

DRUGS (7)
  1. PREDNISONE TAB [Concomitant]
  2. CALCIUM [Concomitant]
  3. MYFORTIC [Suspect]
     Dosage: 360 MG, QD
  4. IRON [Concomitant]
  5. VITAMIN D [Concomitant]
  6. ADALAT [Concomitant]
  7. RAMIPRIL [Concomitant]

REACTIONS (14)
  - SWELLING FACE [None]
  - EAR HAEMORRHAGE [None]
  - THERMAL BURN [None]
  - LOWER LIMB FRACTURE [None]
  - STEVENS-JOHNSON SYNDROME [None]
  - RASH GENERALISED [None]
  - ALOPECIA [None]
  - EPISTAXIS [None]
  - VAGINAL HAEMORRHAGE [None]
  - MOUTH HAEMORRHAGE [None]
  - DRUG HYPERSENSITIVITY [None]
  - PAIN [None]
  - LIP SWELLING [None]
  - EYE SWELLING [None]
